FAERS Safety Report 25407837 (Version 1)
Quarter: 2025Q2

REPORT INFORMATION
  Report Type: Spontaneous
  Country: US (occurrence: US)
  Receive Date: 20250606
  Receipt Date: 20250606
  Transmission Date: 20250716
  Serious: No
  Sender: JOHNSON AND JOHNSON
  Company Number: US-JNJFOC-20250606298

PATIENT
  Age: 55 Year
  Sex: Female
  Weight: 52 kg

DRUGS (9)
  1. LAZCLUZE [Suspect]
     Active Substance: LAZERTINIB
     Indication: Lung neoplasm malignant
     Route: 048
     Dates: start: 20241106
  2. RYBREVANT [Suspect]
     Active Substance: AMIVANTAMAB-VMJW
     Indication: Product used for unknown indication
     Route: 042
  3. DEXAMETHASONE [Concomitant]
     Active Substance: DEXAMETHASONE
     Indication: Product used for unknown indication
  4. DORZOLAMIDE [Concomitant]
     Active Substance: DORZOLAMIDE
     Indication: Product used for unknown indication
  5. APIXABAN [Concomitant]
     Active Substance: APIXABAN
     Indication: Product used for unknown indication
  6. FOLIC ACID [Concomitant]
     Active Substance: FOLIC ACID
     Indication: Product used for unknown indication
  7. ONDANSETRON [ONDANSETRON HYDROCHLORIDE DIHYDRATE] [Concomitant]
     Indication: Product used for unknown indication
  8. PROCHLORPERAZINE MALEATE [Concomitant]
     Active Substance: PROCHLORPERAZINE MALEATE
     Indication: Product used for unknown indication
  9. TAGRISSO [Concomitant]
     Active Substance: OSIMERTINIB
     Indication: Product used for unknown indication

REACTIONS (2)
  - Fatigue [Recovering/Resolving]
  - Rash [Recovering/Resolving]
